FAERS Safety Report 20775108 (Version 1)
Quarter: 2022Q2

REPORT INFORMATION
  Report Type: Spontaneous
  Country: US (occurrence: None)
  Receive Date: 20220502
  Receipt Date: 20220502
  Transmission Date: 20220720
  Serious: No
  Sender: FDA-Public Use
  Company Number: None

PATIENT
  Age: 83 Year
  Sex: Female
  Weight: 61.69 kg

DRUGS (9)
  1. IBRANCE [Suspect]
     Active Substance: PALBOCICLIB
     Indication: Breast cancer female
     Dosage: OTHER FREQUENCY : 21D ON 7 OFF;?
     Route: 048
     Dates: start: 20210524
  2. AMOXICILLIN [Concomitant]
  3. DIOVAN [Concomitant]
  4. FEMARA [Concomitant]
  5. HYDROCODONE-ACETAMINOPHEN [Concomitant]
  6. LEXAPRO [Concomitant]
  7. MELOXICAM [Concomitant]
  8. MULTIPLE VITAMIN [Concomitant]
  9. OMEPRAZOLE [Concomitant]

REACTIONS (2)
  - COVID-19 [None]
  - Therapy interrupted [None]
